APPROVED DRUG PRODUCT: DEMEROL
Active Ingredient: MEPERIDINE HYDROCHLORIDE
Strength: 50MG/5ML **Federal Register determination that product was not discontinued or withdrawn for safety or effectiveness reasons**
Dosage Form/Route: SYRUP;ORAL
Application: N005010 | Product #005
Applicant: QUAGEN PHARMACEUTICALS LLC
Approved: Approved Prior to Jan 1, 1982 | RLD: No | RS: No | Type: DISCN